FAERS Safety Report 5608981-5 (Version None)
Quarter: 2008Q1

REPORT INFORMATION
  Report Type: 
  Country: None (occurrence: None)
  Receive Date: 20080131
  Receipt Date: 20080124
  Transmission Date: 20080703
  Serious: Yes (Hospitalization)
  Sender: FDA-Public Use
  Company Number: US-JNJFOC-20060303425

PATIENT
  Sex: Male
  Weight: 106.6 kg

DRUGS (4)
  1. LEVAQUIN [Suspect]
     Indication: CHRONIC SINUSITIS
     Route: 048
     Dates: start: 20051116, end: 20051124
  2. TRICOR [Concomitant]
     Indication: BLOOD CHOLESTEROL
     Route: 065
  3. ALTACE [Concomitant]
     Indication: HYPERTENSION
  4. ASPIRIN [Concomitant]
     Route: 065

REACTIONS (4)
  - CHEST PAIN [None]
  - GASTROOESOPHAGEAL REFLUX DISEASE [None]
  - HIATUS HERNIA [None]
  - QUALITY OF LIFE DECREASED [None]
